FAERS Safety Report 23557004 (Version 1)
Quarter: 2024Q1

REPORT INFORMATION
  Report Type: Spontaneous
  Country: DE (occurrence: DE)
  Receive Date: 20240223
  Receipt Date: 20240223
  Transmission Date: 20240410
  Serious: Yes (Other)
  Sender: FDA-Public Use
  Company Number: None

PATIENT
  Sex: Male

DRUGS (2)
  1. PREDNISOLONE [Suspect]
     Active Substance: PREDNISOLONE
     Indication: Polymyalgia rheumatica
     Dosage: - INITIALLY 10 MG/D, SINCE SEPTEMBER 2022 MAINTENANCE DOSE 5 MG/D.
     Route: 065
     Dates: start: 202209
  2. PREDNISOLONE [Suspect]
     Active Substance: PREDNISOLONE
     Indication: Polymyalgia rheumatica
     Dosage: - INITIALLY 10 MG/D, SINCE SEPTEMBER 2022 MAINTENANCE DOSE 5 MG/D.??PREDNISOLON
     Route: 065
     Dates: start: 202203

REACTIONS (4)
  - Loss of consciousness [Unknown]
  - Fall [Unknown]
  - Syncope [Unknown]
  - Bradycardia [Unknown]

NARRATIVE: CASE EVENT DATE: 20230401
